FAERS Safety Report 8978588 (Version 1)
Quarter: 2012Q4

REPORT INFORMATION
  Report Type: Spontaneous
  Country: US (occurrence: None)
  Receive Date: 20121218
  Receipt Date: 20121218
  Transmission Date: 20130627
  Serious: Yes (Hospitalization)
  Sender: FDA-Public Use
  Company Number: None

PATIENT
  Age: 39 Year
  Sex: Female
  Weight: 99.79 kg

DRUGS (2)
  1. DEPO-MEDROL [Suspect]
     Dosage: 40mg one time Intra-articular
     Route: 014
     Dates: start: 20121112, end: 20121112
  2. DEPO-MEDROL [Suspect]
     Dosage: 40mg one time Intra-articular
     Route: 014
     Dates: start: 20121112, end: 20121112

REACTIONS (3)
  - Arthritis bacterial [None]
  - Staphylococcal infection [None]
  - Enterobacter infection [None]
